FAERS Safety Report 7305755-4 (Version None)
Quarter: 2011Q1

REPORT INFORMATION
  Report Type: 
  Country: None (occurrence: None)
  Receive Date: 20110222
  Receipt Date: 20110214
  Transmission Date: 20110831
  Serious: Yes (Hospitalization)
  Sender: FDA-Public Use
  Company Number: B0697863A

PATIENT
  Sex: Female
  Weight: 40 kg

DRUGS (9)
  1. REQUIP [Suspect]
     Dosage: 3MG PER DAY
     Route: 048
     Dates: start: 20080620, end: 20080918
  2. REQUIP [Suspect]
     Route: 048
     Dates: start: 20080919, end: 20081022
  3. MADOPAR [Concomitant]
     Indication: PARKINSON'S DISEASE
     Dosage: 900MG PER DAY
     Route: 048
     Dates: start: 20070216
  4. REQUIP [Suspect]
     Indication: PARKINSON'S DISEASE
     Dosage: .75MG PER DAY
     Route: 048
     Dates: start: 20080502, end: 20080619
  5. REQUIP [Suspect]
     Dosage: 3MG PER DAY
     Route: 048
     Dates: start: 20081023
  6. SYMMETREL [Concomitant]
     Indication: PARKINSON'S DISEASE
     Route: 048
  7. MAGLAX [Concomitant]
     Dosage: 990MG PER DAY
     Route: 048
  8. KETAS [Concomitant]
     Route: 048
  9. PURSENNID [Concomitant]
     Dosage: 12MG PER DAY
     Route: 048

REACTIONS (1)
  - NEUROLEPTIC MALIGNANT SYNDROME [None]
